FAERS Safety Report 5738673-3 (Version None)
Quarter: 2008Q2

REPORT INFORMATION
  Report Type: 
  Country: None (occurrence: None)
  Receive Date: 20080513
  Receipt Date: 20080429
  Transmission Date: 20081010
  Serious: Yes (Hospitalization)
  Sender: FDA-Public Use
  Company Number: SPV1-2008-00967

PATIENT
  Age: 17 Year
  Sex: Female

DRUGS (1)
  1. VYVANSE [Suspect]
     Dosage: UNK MG, 1X/DAY;QD, ORAL
     Route: 048
     Dates: start: 20080101, end: 20080401

REACTIONS (1)
  - MUSCULOSKELETAL CHEST PAIN [None]
